FAERS Safety Report 9951287 (Version 1)
Quarter: 2014Q1

REPORT INFORMATION
  Report Type: Report from Study
  Country: US (occurrence: US)
  Receive Date: 20140304
  Receipt Date: 20140304
  Transmission Date: 20141002
  Serious: No
  Sender: FDA-Public Use
  Company Number: US-ABBVIE-13P-163-1072346-00

PATIENT
  Age: 22 Year
  Sex: Female
  Weight: 39.5 kg

DRUGS (12)
  1. HUMIRA [Suspect]
     Indication: CROHN^S DISEASE
     Dosage: ONE TIME DOSE
     Route: 058
     Dates: start: 20130313, end: 20130313
  2. HUMIRA [Suspect]
     Dosage: ONE TIME DOSE
     Route: 058
     Dates: start: 20130314, end: 20130314
  3. HUMIRA [Suspect]
     Dosage: ONE TIME DOSE
     Route: 058
     Dates: start: 20130328, end: 20130328
  4. 6-MP [Concomitant]
     Indication: CROHN^S DISEASE
  5. LIALDA [Concomitant]
     Indication: CROHN^S DISEASE
  6. PREDNISONE [Concomitant]
     Indication: CROHN^S DISEASE
  7. ASACOL [Concomitant]
     Indication: CROHN^S DISEASE
  8. LEVOTHYROXINE [Concomitant]
     Indication: AUTOIMMUNE THYROIDITIS
  9. LEVOTHYROXINE [Concomitant]
     Indication: AUTOIMMUNE THYROIDITIS
  10. FOLIC ACID [Concomitant]
     Indication: PRODUCT USED FOR UNKNOWN INDICATION
  11. VITAMIN B-12 [Concomitant]
     Indication: PRODUCT USED FOR UNKNOWN INDICATION
  12. FLUOXETINE [Concomitant]
     Indication: DEPRESSION

REACTIONS (1)
  - Nasopharyngitis [Recovered/Resolved]
